FAERS Safety Report 9119791 (Version 1)
Quarter: 2013Q1

REPORT INFORMATION
  Report Type: Spontaneous
  Country: GB (occurrence: GB)
  Receive Date: 20130207
  Receipt Date: 20130207
  Transmission Date: 20140127
  Serious: Yes (Other)
  Sender: FDA-Public Use
  Company Number: PHHY2013GB009584

PATIENT
  Sex: Female

DRUGS (2)
  1. DILTIAZEM [Suspect]
     Dosage: 60 MG, QD
  2. SIMVASTATIN [Suspect]
     Dosage: 40 MG, (IN THE MORNING)
     Route: 048

REACTIONS (2)
  - Rhabdomyolysis [Unknown]
  - Renal failure acute [Unknown]
